FAERS Safety Report 4790300-8 (Version None)
Quarter: 2005Q4

REPORT INFORMATION
  Report Type: 
  Country: None (occurrence: None)
  Receive Date: 20051005
  Receipt Date: 20050919
  Transmission Date: 20060501
  Serious: Yes (Hospitalization, Other)
  Sender: FDA-Public Use
  Company Number: USA0509108525

PATIENT
  Age: 39 Year
  Sex: Male

DRUGS (6)
  1. CYMBALTA [Suspect]
     Indication: MAJOR DEPRESSION
     Dosage: 30 MG
     Dates: start: 20050401, end: 20050501
  2. LEXAPRO [Concomitant]
  3. EFFEXOR [Concomitant]
  4. CLARITIN [Concomitant]
  5. LOTREL [Concomitant]
  6. ANDROGEL [Concomitant]

REACTIONS (6)
  - BLOOD TESTOSTERONE INCREASED [None]
  - BLOOD TRIGLYCERIDES INCREASED [None]
  - DEHYDRATION [None]
  - DIABETES MELLITUS [None]
  - VISION BLURRED [None]
  - WEIGHT DECREASED [None]
